FAERS Safety Report 18614956 (Version 1)
Quarter: 2020Q4

REPORT INFORMATION
  Report Type: Report from Study
  Country: BR (occurrence: BR)
  Receive Date: 20201214
  Receipt Date: 20201214
  Transmission Date: 20210114
  Serious: Yes (Other)
  Sender: FDA-Public Use
  Company Number: BR-TAKEDA-BR202000448

PATIENT
  Age: 21 Year
  Sex: Male
  Weight: 43.5 kg

DRUGS (6)
  1. IBUPROFEN. [Concomitant]
     Active Substance: IBUPROFEN
     Indication: ARTHRALGIA
     Dosage: TABLET
     Route: 065
  2. HEMO-8R [Suspect]
     Active Substance: ANTIHEMOPHILIC FACTOR, HUMAN RECOMBINANT
     Indication: FACTOR VIII DEFICIENCY
     Dosage: 1250 INTERNATIONAL UNIT, QD
     Route: 042
     Dates: start: 20191225
  3. HEMO-8R [Suspect]
     Active Substance: ANTIHEMOPHILIC FACTOR, HUMAN RECOMBINANT
     Dosage: 1000 INTERNATIONAL UNIT, QD
     Route: 042
     Dates: start: 20191226
  4. IBUPROFEN. [Concomitant]
     Active Substance: IBUPROFEN
     Indication: PAIN
  5. HEMO-8R [Suspect]
     Active Substance: ANTIHEMOPHILIC FACTOR, HUMAN RECOMBINANT
     Dosage: 1250 INTERNATIONAL UNIT, QD
     Route: 042
     Dates: start: 20000513
  6. IBUPROFEN. [Concomitant]
     Active Substance: IBUPROFEN
     Indication: INFLAMMATION

REACTIONS (9)
  - Tuberculosis [Recovered/Resolved with Sequelae]
  - Back pain [Unknown]
  - Haemorrhage [Recovered/Resolved]
  - Purulent discharge [Recovering/Resolving]
  - Incorrect dose administered by product [Unknown]
  - Bronchiectasis [Recovered/Resolved with Sequelae]
  - Haemoptysis [Not Recovered/Not Resolved]
  - Influenza [Not Recovered/Not Resolved]
  - Product availability issue [Unknown]

NARRATIVE: CASE EVENT DATE: 20191226
